FAERS Safety Report 12262063 (Version 19)
Quarter: 2019Q2

REPORT INFORMATION
  Report Type: Report from Study
  Country: CA (occurrence: CA)
  Receive Date: 20160413
  Receipt Date: 20190430
  Transmission Date: 20190711
  Serious: Yes (Other)
  Sender: FDA-Public Use
  Company Number: CA-ROCHE-1709474

PATIENT
  Age: 59 Year
  Sex: Female

DRUGS (9)
  1. ACETYLSALICYLIC ACID [Concomitant]
     Active Substance: ASPIRIN
  2. AZITHROMYCIN ANHYDROUS. [Concomitant]
     Active Substance: AZITHROMYCIN ANHYDROUS
     Route: 048
  3. ACTEMRA [Suspect]
     Active Substance: TOCILIZUMAB
     Dosage: 20 MG/ML
     Route: 042
     Dates: start: 2016
  4. FOLIC ACID. [Concomitant]
     Active Substance: FOLIC ACID
  5. PERINDOPRIL [Concomitant]
     Active Substance: PERINDOPRIL
     Indication: HYPERTENSION
  6. ACTEMRA [Suspect]
     Active Substance: TOCILIZUMAB
     Indication: RHEUMATOID ARTHRITIS
     Route: 042
     Dates: start: 20160209
  7. BISOPROLOL [Concomitant]
     Active Substance: BISOPROLOL
  8. METHOTREXATE. [Concomitant]
     Active Substance: METHOTREXATE
  9. CELEBREX [Concomitant]
     Active Substance: CELECOXIB

REACTIONS (13)
  - Middle ear effusion [Unknown]
  - Joint stiffness [Not Recovered/Not Resolved]
  - Cough [Recovering/Resolving]
  - Joint swelling [Unknown]
  - Blood pressure increased [Unknown]
  - Heart rate decreased [Unknown]
  - Eye infection [Not Recovered/Not Resolved]
  - Blood pressure increased [Unknown]
  - Tympanic membrane perforation [Not Recovered/Not Resolved]
  - Sinusitis [Not Recovered/Not Resolved]
  - Sinusitis [Unknown]
  - Conjunctivitis [Not Recovered/Not Resolved]
  - Nasopharyngitis [Recovering/Resolving]

NARRATIVE: CASE EVENT DATE: 20160209
